FAERS Safety Report 15903473 (Version 2)
Quarter: 2020Q1

REPORT INFORMATION
  Report Type: Spontaneous
  Country: US (occurrence: US)
  Receive Date: 20190203
  Receipt Date: 20200309
  Transmission Date: 20200409
  Serious: Yes (Other)
  Sender: FDA-Public Use
  Company Number: US-SA-2019SA029045

PATIENT
  Sex: Female

DRUGS (2)
  1. CEREZYME [Suspect]
     Active Substance: IMIGLUCERASE
     Indication: GAUCHER^S DISEASE
     Dosage: 3200 U, QOW
     Route: 041
     Dates: start: 20150320
  2. CEREZYME [Suspect]
     Active Substance: IMIGLUCERASE
     Dosage: 2800 U, QOW (EVERY 2 WEEKS)
     Route: 041
     Dates: start: 20150321

REACTIONS (1)
  - Parkinson^s disease [Unknown]
